FAERS Safety Report 17094561 (Version 2)
Quarter: 2019Q4

REPORT INFORMATION
  Report Type: Report from Study
  Country: None (occurrence: FR)
  Receive Date: 20191129
  Receipt Date: 20191202
  Transmission Date: 20200122
  Serious: Yes (Hospitalization)
  Sender: FDA-Public Use
  Company Number: FR-ABBVIE-19K-056-3175381-00

PATIENT
  Age: 16 Year
  Sex: Female
  Weight: 64 kg

DRUGS (4)
  1. HUMIRA [Suspect]
     Active Substance: ADALIMUMAB
     Indication: CROHN^S DISEASE
     Route: 058
     Dates: start: 20180703, end: 20180703
  2. HUMIRA [Suspect]
     Active Substance: ADALIMUMAB
     Dosage: 14 DAYS AFTER LAST INJECTION
     Route: 058
     Dates: start: 20180716, end: 20180716
  3. HUMIRA [Suspect]
     Active Substance: ADALIMUMAB
     Route: 058
     Dates: end: 20190116
  4. HUMIRA [Suspect]
     Active Substance: ADALIMUMAB
     Dosage: 14 DAYS AFTER LAST INJECTION
     Route: 058
     Dates: start: 20180729, end: 20181211

REACTIONS (3)
  - Ileal ulcer [Recovering/Resolving]
  - Colitis ulcerative [Recovering/Resolving]
  - Colitis ulcerative [Unknown]

NARRATIVE: CASE EVENT DATE: 2019
